FAERS Safety Report 16001213 (Version 2)
Quarter: 2019Q2

REPORT INFORMATION
  Report Type: Report from Study
  Country: CA (occurrence: CA)
  Receive Date: 20190225
  Receipt Date: 20190613
  Transmission Date: 20190711
  Serious: Yes (Other)
  Sender: FDA-Public Use
  Company Number: CA-JNJFOC-20190222980

PATIENT
  Age: 11 Year
  Sex: Female
  Weight: 27.5 kg

DRUGS (1)
  1. REMICADE [Suspect]
     Active Substance: INFLIXIMAB
     Indication: CROHN^S DISEASE
     Dosage: STRENGTH = 100 MG
     Route: 042

REACTIONS (4)
  - Abscess limb [Recovering/Resolving]
  - Folliculitis [Recovering/Resolving]
  - Eczema [Recovering/Resolving]
  - Furuncle [Recovering/Resolving]

NARRATIVE: CASE EVENT DATE: 20190530
